FAERS Safety Report 5487311-6 (Version None)
Quarter: 2007Q4

REPORT INFORMATION
  Report Type: 
  Country: None (occurrence: None)
  Receive Date: 20071016
  Receipt Date: 20071012
  Transmission Date: 20080405
  Serious: Yes (Life-Threatening, Hospitalization, Other)
  Sender: FDA-Public Use
  Company Number: US-MERCK-0709USA01781

PATIENT
  Age: 55 Year
  Sex: Male

DRUGS (1)
  1. ZOLINZA [Suspect]
     Indication: MYCOSIS FUNGOIDES
     Route: 048

REACTIONS (8)
  - ACUTE PRERENAL FAILURE [None]
  - ANAEMIA [None]
  - DEHYDRATION [None]
  - DELIRIUM [None]
  - FUNGAL INFECTION [None]
  - HYPOVENTILATION [None]
  - MALAISE [None]
  - THROMBOCYTOPENIA [None]
